FAERS Safety Report 9588458 (Version 1)
Quarter: 2013Q4

REPORT INFORMATION
  Report Type: Spontaneous
  Country: US (occurrence: US)
  Receive Date: 20131003
  Receipt Date: 20131003
  Transmission Date: 20140711
  Serious: No
  Sender: FDA-Public Use
  Company Number: US-AMGEN-USASP2012064112

PATIENT
  Age: 38 Year
  Sex: Female

DRUGS (9)
  1. ENBREL [Suspect]
     Indication: RHEUMATOID ARTHRITIS
     Dosage: 50 MG, QWK
     Route: 058
  2. DESOGEN-28 [Concomitant]
     Dosage: UNK
     Route: 048
  3. PREDNISONE [Concomitant]
     Dosage: 2.5 MG, UNK
     Route: 048
  4. TRAMADOL HCL [Concomitant]
     Dosage: 50 MG, UNK
     Route: 048
  5. FOLIC ACID [Concomitant]
     Dosage: 1 MG, UNK
     Route: 048
  6. BYSTOLIC [Concomitant]
     Dosage: 2.5 MG, UNK
     Route: 048
  7. VITAMIN D                          /00107901/ [Concomitant]
     Dosage: 1000 UNIT, UNK
     Route: 048
  8. IRON [Concomitant]
     Dosage: 25 MG, UNK
     Route: 048
  9. METHOTREXATE [Concomitant]
     Dosage: 20 MG, UNK

REACTIONS (4)
  - Injection site erythema [Unknown]
  - Injection site swelling [Unknown]
  - Injection site pruritus [Unknown]
  - Injection site reaction [Unknown]
